FAERS Safety Report 8644495 (Version 2)
Quarter: 2012Q4

REPORT INFORMATION
  Report Type: 
  Country: US (occurrence: US)
  Receive Date: 20120629
  Receipt Date: 20120914
  Transmission Date: 20130627
  Serious: Yes (Other)
  Sender: FDA-Public Use
  Company Number: US-ELI_LILLY_AND_COMPANY-US201206006889

PATIENT
  Age: 57 Year
  Sex: Female

DRUGS (7)
  1. CYMBALTA [Suspect]
     Indication: FIBROMYALGIA
     Dosage: 60 mg, daily
  2. LORATADINE [Concomitant]
     Indication: HYPERSENSITIVITY
     Dosage: 10 mg, qd
  3. ONDANSETRON [Concomitant]
     Indication: ABDOMINAL DISCOMFORT
     Dosage: 8 mg, bid
  4. DEXAMETHASONE [Concomitant]
     Indication: ABDOMINAL DISCOMFORT
     Dosage: 8 mg, bid
  5. DOCUSATE [Concomitant]
     Indication: CONSTIPATION
     Dosage: 100 mg, prn
  6. PROCHLORPERAZINE [Concomitant]
     Indication: NAUSEA
     Dosage: 10 mg, prn
  7. LYRICA [Concomitant]
     Indication: FIBROMYALGIA
     Dosage: 300 mg, bid

REACTIONS (4)
  - Ovarian cancer [Unknown]
  - Chemical burn of skin [Unknown]
  - Hypoaesthesia [Unknown]
  - Paraesthesia [Unknown]
